FAERS Safety Report 10916232 (Version 1)
Quarter: 2015Q1

REPORT INFORMATION
  Report Type: Spontaneous
  Country: US (occurrence: US)
  Receive Date: 20150316
  Receipt Date: 20150316
  Transmission Date: 20150721
  Serious: No
  Sender: FDA-Public Use
  Company Number: US-ASTRAZENECA-2015SE21233

PATIENT
  Sex: Female
  Weight: 69.9 kg

DRUGS (4)
  1. SYMBICORT [Suspect]
     Active Substance: BUDESONIDE\FORMOTEROL FUMARATE DIHYDRATE
     Indication: ASTHMA
     Dosage: 320 UG TWO TIMES A DAY
     Route: 055
     Dates: start: 201411, end: 201502
  2. IMITREX [Concomitant]
     Active Substance: SUMATRIPTAN\SUMATRIPTAN SUCCINATE
     Indication: SLEEP DISORDER
     Route: 048
     Dates: start: 2009
  3. ALBUTEROL. [Concomitant]
     Active Substance: ALBUTEROL
     Indication: ASTHMA
     Route: 055
  4. ASACOL [Concomitant]
     Active Substance: MESALAMINE
     Indication: ABDOMINAL DISCOMFORT
     Route: 048
     Dates: start: 2010

REACTIONS (4)
  - Lacrimation increased [Recovered/Resolved]
  - Paraesthesia [Not Recovered/Not Resolved]
  - Sensation of foreign body [Recovering/Resolving]
  - Restless legs syndrome [Not Recovered/Not Resolved]
